FAERS Safety Report 5971201-6 (Version None)
Quarter: 2008Q4

REPORT INFORMATION
  Report Type: 
  Country: None (occurrence: None)
  Receive Date: 20081128
  Receipt Date: 20081117
  Transmission Date: 20090506
  Serious: Yes (Hospitalization)
  Sender: FDA-Public Use
  Company Number: DE-ROCHE-591647

PATIENT
  Sex: Male
  Weight: 77.5 kg

DRUGS (17)
  1. METHOXY POLYETHYLENE GLYCOL-EPOETIN BETA [Suspect]
     Route: 042
     Dates: start: 20080919
  2. LIQUAEMIN INJ [Concomitant]
     Dosage: STRENGTH; 5000 IE; DOSE: 1-0-1
     Route: 058
  3. NEXIUM [Concomitant]
     Dosage: DOSE: 1-0-0
     Route: 048
  4. MARCUMAR [Concomitant]
     Dates: start: 20071020
  5. METOPROLOL TARTRATE [Concomitant]
     Dosage: 1/2-0-1/2
     Route: 048
     Dates: start: 20080228
  6. OMEPRAZOLE [Concomitant]
     Route: 048
     Dates: start: 20080226
  7. AMIODARONE HCL [Concomitant]
     Route: 048
  8. DIGIMERCK MINOR [Concomitant]
     Route: 048
     Dates: start: 20080126
  9. PHOSPHONORM [Concomitant]
     Dosage: FREQUENCY: 2-2-2
     Route: 048
     Dates: start: 20071020
  10. METOCLOPRAMIDE [Concomitant]
     Dosage: DOSE: MG/ML
     Dates: start: 20070809
  11. FUROSEMID [Concomitant]
     Route: 048
     Dates: start: 20070906
  12. BONDIOL [Concomitant]
     Route: 048
     Dates: start: 20080421
  13. ACETYLCYSTEINE [Concomitant]
     Route: 048
  14. REMERGIL [Concomitant]
     Route: 048
  15. RISPERDAL [Concomitant]
     Route: 048
  16. DIPIPERON [Concomitant]
     Route: 048
  17. LANTUS [Concomitant]
     Dosage: DOSE: 8 IE
     Route: 058

REACTIONS (3)
  - INGUINAL HERNIA, OBSTRUCTIVE [None]
  - INTESTINAL PERFORATION [None]
  - PULMONARY CONGESTION [None]
